FAERS Safety Report 13354322 (Version 1)
Quarter: 2017Q1

REPORT INFORMATION
  Report Type: Spontaneous
  Country: US (occurrence: US)
  Receive Date: 20170318
  Receipt Date: 20170318
  Transmission Date: 20170429
  Serious: Yes (Hospitalization)
  Sender: FDA-Public Use
  Company Number: None

PATIENT
  Age: 2 Year
  Sex: Female
  Weight: 15.6 kg

DRUGS (5)
  1. VINCRISTINE SULFATE. [Concomitant]
     Active Substance: VINCRISTINE SULFATE
     Dates: end: 20170302
  2. CYTARABINE. [Suspect]
     Active Substance: CYTARABINE
     Dates: end: 20170209
  3. METHOTREXATE. [Suspect]
     Active Substance: METHOTREXATE
     Dates: end: 20170309
  4. DEXAMETHASONE. [Suspect]
     Active Substance: DEXAMETHASONE
     Dates: end: 20170308
  5. ONCASPAR [Suspect]
     Active Substance: PEGASPARGASE
     Dates: end: 20170214

REACTIONS (5)
  - Haemoglobin decreased [None]
  - Post procedural complication [None]
  - Procedural haemorrhage [None]
  - Anaemia [None]
  - Tachycardia [None]

NARRATIVE: CASE EVENT DATE: 20170309
